FAERS Safety Report 4575275-9 (Version None)
Quarter: 2005Q1

REPORT INFORMATION
  Report Type: 
  Country: None (occurrence: None)
  Receive Date: 20050127
  Receipt Date: 20050127
  Transmission Date: 20050727
  Serious: No
  Sender: FDA-Public Use
  Company Number: None

PATIENT
  Age: 23 Month
  Sex: Female
  Weight: 11.1 kg

DRUGS (2)
  1. CARBOPLATIN [Suspect]
     Indication: ASTROCYTOMA
     Dosage: OVER 60 MIN. 91 MG IV
     Route: 042
     Dates: start: 20041119, end: 20040114
  2. VINCRISTINE [Concomitant]

REACTIONS (2)
  - FLUSHING [None]
  - RASH [None]
